FAERS Safety Report 17428720 (Version 2)
Quarter: 2020Q1

REPORT INFORMATION
  Report Type: Spontaneous
  Country: US (occurrence: US)
  Receive Date: 20200218
  Receipt Date: 20200309
  Transmission Date: 20200409
  Serious: No
  Sender: FDA-Public Use
  Company Number: US-ASTRAZENECA-2020SE17475

PATIENT
  Age: 51 Year
  Sex: Male
  Weight: 85.7 kg

DRUGS (6)
  1. XIGDUO XR [Suspect]
     Active Substance: DAPAGLIFLOZIN PROPANEDIOL\METFORMIN HYDROCHLORIDE
     Indication: PROPHYLAXIS
     Dosage: 5MG-1000MG TWO TABS EACH MORNING.
     Route: 048
     Dates: start: 2019
  2. GEMFIBRIZIL [Concomitant]
  3. BYDUREON [Suspect]
     Active Substance: EXENATIDE
     Indication: PROPHYLAXIS
     Route: 058
     Dates: start: 2019
  4. NASONEX [Concomitant]
     Active Substance: MOMETASONE FUROATE
  5. GABAPENTIN. [Concomitant]
     Active Substance: GABAPENTIN
  6. ZANAFLEX [Concomitant]
     Active Substance: TIZANIDINE HYDROCHLORIDE

REACTIONS (10)
  - Product dose omission [Not Recovered/Not Resolved]
  - Device issue [Unknown]
  - Needle issue [Unknown]
  - Product use issue [Not Recovered/Not Resolved]
  - Hypophagia [Unknown]
  - Injection site mass [Not Recovered/Not Resolved]
  - Decreased appetite [Not Recovered/Not Resolved]
  - Weight decreased [Not Recovered/Not Resolved]
  - Injection site haemorrhage [Unknown]
  - Device leakage [Unknown]

NARRATIVE: CASE EVENT DATE: 2019
